FAERS Safety Report 19633538 (Version 1)
Quarter: 2021Q3

REPORT INFORMATION
  Report Type: Spontaneous
  Country: US (occurrence: US)
  Receive Date: 20210730
  Receipt Date: 20210730
  Transmission Date: 20211014
  Serious: No
  Sender: FDA-Public Use
  Company Number: US-TEVA-2021-US-1935053

PATIENT
  Sex: Female

DRUGS (12)
  1. PROPRANOLOL [Concomitant]
     Active Substance: PROPRANOLOL HYDROCHLORIDE
     Indication: TREMOR
     Route: 065
  2. MELATONIN [Concomitant]
     Active Substance: MELATONIN
     Route: 065
  3. LEVOTHYROXINE SODIUM. [Concomitant]
     Active Substance: LEVOTHYROXINE SODIUM
     Route: 065
  4. GLUCOSAMINE?CHONDROITIN [Concomitant]
     Active Substance: CHONDROITIN SULFATE (BOVINE)\GLUCOSAMINE SULFATE
     Route: 065
  5. DEPAKOTE [Concomitant]
     Active Substance: DIVALPROEX SODIUM
     Route: 065
  6. AUSTEDO [Suspect]
     Active Substance: DEUTETRABENAZINE
     Indication: FACIAL SPASM
  7. LOMAIRA [Concomitant]
     Active Substance: PHENTERMINE HYDROCHLORIDE
     Route: 065
  8. AUSTEDO [Suspect]
     Active Substance: DEUTETRABENAZINE
     Indication: MOVEMENT DISORDER
     Dosage: 9 MILLIGRAM DAILY;
     Route: 048
  9. MULTIVITAMINS TABLET [Concomitant]
     Route: 065
  10. LIPITOR [Concomitant]
     Active Substance: ATORVASTATIN CALCIUM
     Route: 065
  11. VITAMIN C [Concomitant]
     Active Substance: ASCORBIC ACID
     Route: 065
  12. FISH OIL [Concomitant]
     Active Substance: FISH OIL
     Route: 065

REACTIONS (1)
  - Weight increased [Recovering/Resolving]
